FAERS Safety Report 6881442-1 (Version None)
Quarter: 2010Q3

REPORT INFORMATION
  Report Type: 
  Country: None (occurrence: None)
  Receive Date: 20100728
  Receipt Date: 20100728
  Transmission Date: 20110219
  Serious: Yes (Other)
  Sender: FDA-Public Use
  Company Number: None

PATIENT
  Sex: Female
  Weight: 77.5651 kg

DRUGS (1)
  1. TRILEPTAL [Suspect]
     Indication: COMPLEX PARTIAL SEIZURES
     Dosage: 600 MG ONE TABLET BID PO
     Route: 048
     Dates: start: 20090720, end: 20100719

REACTIONS (2)
  - CONVULSION [None]
  - DRUG INEFFECTIVE [None]
